FAERS Safety Report 12880250 (Version 1)
Quarter: 2016Q4

REPORT INFORMATION
  Report Type: Spontaneous
  Country: US (occurrence: US)
  Receive Date: 20161025
  Receipt Date: 20161025
  Transmission Date: 20170207
  Serious: No
  Sender: FDA-Public Use
  Company Number: None

PATIENT

DRUGS (2)
  1. CARBOPLATIN. [Suspect]
     Active Substance: CARBOPLATIN
     Dosage: CARBOPLATIN - STRENGTH 600 MG/60 ML - MULTI-DOSE VIAL - IV
     Route: 042
  2. PACLITAXEL  300MG/50ML [Suspect]
     Active Substance: PACLITAXEL
     Dosage: PACLITAXEL STRENGTH 300 MG/50 ML MULTIDOSE VIAL - INJECTION

REACTIONS (2)
  - Product packaging confusion [None]
  - Product outer packaging issue [None]
